FAERS Safety Report 4577806-1 (Version None)
Quarter: 2005Q1

REPORT INFORMATION
  Report Type: 
  Country: None (occurrence: None)
  Receive Date: 20050209
  Receipt Date: 20050202
  Transmission Date: 20050727
  Serious: Yes (Other)
  Sender: FDA-Public Use
  Company Number: 200510476BCC

PATIENT
  Age: 75 Year
  Sex: Female
  Weight: 58.9676 kg

DRUGS (1)
  1. MILK OF MAGNESIA TAB [Suspect]
     Indication: CONSTIPATION
     Dosage: 30 ML, QD, ORAL
     Route: 048
     Dates: start: 20050116, end: 20050118

REACTIONS (1)
  - HAEMATOCHEZIA [None]
